FAERS Safety Report 9026683 (Version 1)
Quarter: 2013Q1

REPORT INFORMATION
  Report Type: Spontaneous
  Country: US (occurrence: US)
  Receive Date: 20130123
  Receipt Date: 20130123
  Transmission Date: 20140127
  Serious: Yes (Other)
  Sender: FDA-Public Use
  Company Number: US-SANOFI-AVENTIS-2013SA003006

PATIENT
  Age: 55 Year
  Sex: Male

DRUGS (2)
  1. PLAVIX [Suspect]
     Indication: STENT PLACEMENT
     Dates: start: 201210
  2. ASPIRIN [Suspect]
     Indication: STENT PLACEMENT

REACTIONS (1)
  - Neoplasm [Unknown]
